FAERS Safety Report 5808964-6 (Version None)
Quarter: 2008Q3

REPORT INFORMATION
  Report Type: 
  Country: None (occurrence: None)
  Receive Date: 20080714
  Receipt Date: 20080703
  Transmission Date: 20090109
  Serious: Yes (Other)
  Sender: FDA-Public Use
  Company Number: US-ROCHE-459664

PATIENT
  Sex: Female

DRUGS (1)
  1. BONIVA [Suspect]
     Route: 048
     Dates: start: 20060501

REACTIONS (10)
  - BLINDNESS UNILATERAL [None]
  - BLOOD GLUCOSE FLUCTUATION [None]
  - BLOOD PRESSURE INCREASED [None]
  - EYE DISORDER [None]
  - MACULAR DEGENERATION [None]
  - MEMORY IMPAIRMENT [None]
  - PAIN [None]
  - STRESS [None]
  - UNEVALUABLE EVENT [None]
  - WEIGHT DECREASED [None]
